FAERS Safety Report 16358510 (Version 1)
Quarter: 2019Q2

REPORT INFORMATION
  Report Type: Spontaneous
  Country: DE (occurrence: DE)
  Receive Date: 20190527
  Receipt Date: 20190527
  Transmission Date: 20190711
  Serious: Yes (Other)
  Sender: FDA-Public Use
  Company Number: DE-UCBSA-2019020901

PATIENT

DRUGS (3)
  1. PREDNISOLONE. [Concomitant]
     Active Substance: PREDNISOLONE
     Indication: PRODUCT USED FOR UNKNOWN INDICATION
  2. CERTOLIZUMAB PEGOL [Suspect]
     Active Substance: CERTOLIZUMAB PEGOL
     Indication: RHEUMATOID ARTHRITIS
     Dosage: UNK
     Route: 064
     Dates: start: 20170523
  3. LODOTRA [Concomitant]
     Active Substance: PREDNISONE
     Indication: PRODUCT USED FOR UNKNOWN INDICATION

REACTIONS (2)
  - Maternal exposure during pregnancy [Unknown]
  - Premature baby [Unknown]

NARRATIVE: CASE EVENT DATE: 20170523
